FAERS Safety Report 6655641-8 (Version None)
Quarter: 2010Q1

REPORT INFORMATION
  Report Type: 
  Country: None (occurrence: None)
  Receive Date: 20100326
  Receipt Date: 20100326
  Transmission Date: 20100710
  Serious: Yes (Hospitalization)
  Sender: FDA-Public Use
  Company Number: None

PATIENT
  Age: 53 Year
  Sex: Male
  Weight: 47.63 kg

DRUGS (1)
  1. METFORMIN (GLUCOPHAGE) [Suspect]
     Indication: DIABETES MELLITUS
     Dosage: 250 MG BID PO
     Route: 048
     Dates: start: 20091209, end: 20100109

REACTIONS (1)
  - LACTIC ACIDOSIS [None]
